FAERS Safety Report 12433069 (Version 1)
Quarter: 2016Q2

REPORT INFORMATION
  Report Type: Spontaneous
  Country: US (occurrence: None)
  Receive Date: 20160602
  Receipt Date: 20160602
  Transmission Date: 20160815
  Serious: No
  Sender: FDA-Public Use
  Company Number: None

PATIENT
  Age: 62 Year
  Sex: Male

DRUGS (19)
  1. CEPHALEXIN. [Concomitant]
     Active Substance: CEPHALEXIN
  2. DOXYCYCL [Concomitant]
  3. FOLIC ACID. [Concomitant]
     Active Substance: FOLIC ACID
  4. LEVOFLOXACIN. [Concomitant]
     Active Substance: LEVOFLOXACIN
  5. LOSARTAN. [Concomitant]
     Active Substance: LOSARTAN
  6. NYSTATIN. [Concomitant]
     Active Substance: NYSTATIN
  7. PREDNISONE. [Concomitant]
     Active Substance: PREDNISONE
  8. TRIAMCINOLONE [Concomitant]
     Active Substance: TRIAMCINOLONE
  9. XELJANZ [Suspect]
     Active Substance: TOFACITINIB CITRATE
     Indication: RHEUMATOID ARTHRITIS
     Route: 048
     Dates: start: 201604, end: 20160514
  10. HCTZ [Concomitant]
     Active Substance: HYDROCHLOROTHIAZIDE
  11. INVOKANA [Concomitant]
     Active Substance: CANAGLIFLOZIN
  12. GLIPIZIDE. [Concomitant]
     Active Substance: GLIPIZIDE
  13. LANTUS [Concomitant]
     Active Substance: INSULIN GLARGINE
  14. TOBRADEX [Concomitant]
     Active Substance: DEXAMETHASONE\TOBRAMYCIN
  15. LEVOTHYROXIN [Concomitant]
     Active Substance: LEVOTHYROXINE
  16. LORAZEPAM. [Concomitant]
     Active Substance: LORAZEPAM
  17. METFORMIN [Concomitant]
     Active Substance: METFORMIN HYDROCHLORIDE
  18. METRONIDAZOL [Concomitant]
     Active Substance: METRONIDAZOLE
  19. WARFARIN [Concomitant]
     Active Substance: WARFARIN

REACTIONS (1)
  - Drug ineffective [None]

NARRATIVE: CASE EVENT DATE: 20160514
